FAERS Safety Report 4979416-0 (Version None)
Quarter: 2006Q2

REPORT INFORMATION
  Report Type: 
  Country: None (occurrence: None)
  Receive Date: 20060421
  Receipt Date: 20051104
  Transmission Date: 20061013
  Serious: Yes (Hospitalization, Disabling)
  Sender: FDA-Public Use
  Company Number: US-MERCK-0511USA00772

PATIENT
  Age: 64 Year
  Sex: Male
  Weight: 86 kg

DRUGS (21)
  1. VIOXX [Suspect]
     Indication: ARTHRALGIA
     Route: 048
     Dates: start: 20000901, end: 20040901
  2. LIPITOR [Concomitant]
     Route: 065
  3. CARTIA (ASPIRIN) [Concomitant]
     Route: 065
  4. ATENOLOL [Concomitant]
     Route: 065
  5. LEVAQUIN [Concomitant]
     Route: 065
  6. NEXIUM [Concomitant]
     Route: 065
  7. UROCIT-K [Concomitant]
     Route: 065
  8. MACROBID [Concomitant]
     Route: 065
  9. AMARYL [Concomitant]
     Route: 065
  10. VERELAN [Concomitant]
     Route: 065
  11. PRINIVIL [Concomitant]
     Route: 065
  12. COZAAR [Concomitant]
     Route: 065
  13. PROTONIX [Concomitant]
     Route: 065
  14. HYZAAR [Concomitant]
     Route: 048
  15. ADVICOR [Concomitant]
     Route: 065
  16. NITROQUICK [Concomitant]
     Route: 065
  17. MECLIZINE [Concomitant]
     Route: 065
  18. PROMETHAZINE [Concomitant]
     Route: 065
  19. AMIODARONE [Concomitant]
     Route: 065
  20. BETAPACE [Concomitant]
     Route: 065
  21. TRICOR [Concomitant]
     Route: 065

REACTIONS (20)
  - ACUTE MYOCARDIAL INFARCTION [None]
  - ATRIAL FIBRILLATION [None]
  - CARDIAC FAILURE CONGESTIVE [None]
  - CARDIOACTIVE DRUG LEVEL INCREASED [None]
  - CHEST PAIN [None]
  - CONGESTIVE CARDIOMYOPATHY [None]
  - CORONARY ARTERY DISEASE [None]
  - FATIGUE [None]
  - FEELING ABNORMAL [None]
  - INGUINAL HERNIA REPAIR [None]
  - ISCHAEMIC CARDIOMYOPATHY [None]
  - MITRAL VALVE INCOMPETENCE [None]
  - MUSCLE STRAIN [None]
  - NAUSEA [None]
  - PARAESTHESIA [None]
  - PLEURAL EFFUSION [None]
  - SUPRAVENTRICULAR TACHYCARDIA [None]
  - TREMOR [None]
  - TRICUSPID VALVE INCOMPETENCE [None]
  - VENTRICULAR TACHYCARDIA [None]
